FAERS Safety Report 8343290-5 (Version None)
Quarter: 2012Q2

REPORT INFORMATION
  Report Type: 
  Country: None (occurrence: None)
  Receive Date: 20120508
  Receipt Date: 20120430
  Transmission Date: 20120825
  Serious: Yes (Other)
  Sender: FDA-Public Use
  Company Number: PHHY2012GR037970

PATIENT
  Age: 58 Year
  Sex: Male

DRUGS (4)
  1. INTERFERON ALFA [Concomitant]
     Dosage: 50-80 UG WEEKLY
  2. FLUOROURACIL [Suspect]
     Indication: PANCREATIC NEUROENDOCRINE TUMOUR
  3. SANDOSTATIN LAR [Suspect]
     Indication: PANCREATIC NEUROENDOCRINE TUMOUR
     Dosage: 20 MG IN EVERY 28 DAYS
  4. STREPTOZOTOCIN [Suspect]
     Indication: PANCREATIC NEUROENDOCRINE TUMOUR

REACTIONS (2)
  - RENAL IMPAIRMENT [None]
  - NEOPLASM MALIGNANT [None]
